FAERS Safety Report 8969121 (Version 3)
Quarter: 2013Q2

REPORT INFORMATION
  Report Type: Report from Study
  Country: CA (occurrence: CA)
  Receive Date: 20121217
  Receipt Date: 20130613
  Transmission Date: 20140414
  Serious: Yes (Hospitalization)
  Sender: FDA-Public Use
  Company Number: CA-PFIZER INC-2012306497

PATIENT
  Age: 36 Year
  Sex: Female

DRUGS (6)
  1. SUTENT [Suspect]
     Indication: MEDULLARY THYROID CANCER
     Dosage: 50 MG, 6 WEEK CYCLE
     Route: 048
     Dates: start: 20120802, end: 20121115
  2. SYNTHROID [Concomitant]
     Indication: HYPOTHYROIDISM
     Dosage: UNK
     Dates: start: 19990401
  3. VITAMIN D [Concomitant]
     Indication: SUPPLEMENTATION THERAPY
     Dosage: UNK
     Dates: start: 19990401
  4. CALCIUM CARBONATE [Concomitant]
     Indication: SUPPLEMENTATION THERAPY
     Dosage: UNK
     Dates: start: 19990401
  5. ADVIL [Concomitant]
     Indication: MIGRAINE
     Dosage: UNK
     Dates: start: 19990101
  6. CLINDAMYCIN [Concomitant]
     Indication: DERMATITIS ACNEIFORM
     Dosage: UNK
     Dates: start: 20120823

REACTIONS (1)
  - Colitis [Recovered/Resolved]
